FAERS Safety Report 5671053-8 (Version None)
Quarter: 2008Q1

REPORT INFORMATION
  Report Type: 
  Country: None (occurrence: None)
  Receive Date: 20080313
  Receipt Date: 20080227
  Transmission Date: 20080703
  Serious: Yes (Other)
  Sender: FDA-Public Use
  Company Number: 2008S1003486

PATIENT
  Age: 33 Year
  Sex: Female

DRUGS (3)
  1. FENTANYL TRANSDERMAL SYSTEM [Suspect]
     Indication: BACK PAIN
     Dosage: 150 UG; EVERY HOUR;TRANSDERMAL
     Route: 062
     Dates: start: 20070201, end: 20070226
  2. BACLOFEN [Concomitant]
  3. CYMBALTA [Concomitant]

REACTIONS (8)
  - FOAMING AT MOUTH [None]
  - HYPERHIDROSIS [None]
  - INCORRECT ROUTE OF DRUG ADMINISTRATION [None]
  - INFLUENZA LIKE ILLNESS [None]
  - LOSS OF CONSCIOUSNESS [None]
  - MEMORY IMPAIRMENT [None]
  - OVERDOSE [None]
  - PYREXIA [None]
